FAERS Safety Report 7988249-2 (Version None)
Quarter: 2011Q4

REPORT INFORMATION
  Report Type: 
  Country: None (occurrence: None)
  Receive Date: 20111216
  Receipt Date: 20110602
  Transmission Date: 20120403
  Serious: No
  Sender: FDA-Public Use
  Company Number: US-ABBOTT-11P-163-0804636-00

PATIENT
  Sex: Female

DRUGS (2)
  1. PROGESTERONE [Suspect]
     Indication: MENOPAUSE
     Dosage: DAILY DOSE:  UNKNOWN, FREQUENCY: ONCE A DAY
     Route: 048
     Dates: start: 20080101
  2. ESTRADIOL [Concomitant]
     Indication: OESTROGEN REPLACEMENT THERAPY
     Dosage: DAILY DOSE:  UNKNOWN,
     Route: 062

REACTIONS (6)
  - NAUSEA [None]
  - ABDOMINAL PAIN UPPER [None]
  - ABDOMINAL PAIN [None]
  - COLD SWEAT [None]
  - DYSPEPSIA [None]
  - DRUG INEFFECTIVE [None]
